FAERS Safety Report 7710263-2 (Version None)
Quarter: 2011Q3

REPORT INFORMATION
  Report Type: 
  Country: None (occurrence: None)
  Receive Date: 20110825
  Receipt Date: 20110819
  Transmission Date: 20111222
  Serious: Yes (Hospitalization)
  Sender: FDA-Public Use
  Company Number: US-BRISTOL-MYERS SQUIBB COMPANY-15986177

PATIENT
  Age: 38 Year
  Sex: Male

DRUGS (1)
  1. REYATAZ [Suspect]

REACTIONS (1)
  - GASTROINTESTINAL TUBE INSERTION [None]
